FAERS Safety Report 6561303-8 (Version None)
Quarter: 2010Q1

REPORT INFORMATION
  Report Type: 
  Country: None (occurrence: None)
  Receive Date: 20100130
  Receipt Date: 20091009
  Transmission Date: 20100710
  Serious: No
  Sender: FDA-Public Use
  Company Number: US-ABBOTT-09P-163-0602337-00

PATIENT
  Sex: Female
  Weight: 68.1 kg

DRUGS (4)
  1. HUMIRA [Suspect]
     Indication: RHEUMATOID ARTHRITIS
     Route: 058
     Dates: start: 20080101, end: 20080101
  2. HUMIRA [Suspect]
     Route: 058
     Dates: start: 20080101, end: 20090601
  3. HUMIRA [Suspect]
     Route: 058
     Dates: start: 20090601
  4. NORCO [Concomitant]
     Indication: ARTHRALGIA
     Route: 048

REACTIONS (2)
  - JOINT SWELLING [None]
  - PAIN IN EXTREMITY [None]
